FAERS Safety Report 8503208-9 (Version None)
Quarter: 2012Q2

REPORT INFORMATION
  Report Type: 
  Country: None (occurrence: None)
  Receive Date: 20120405
  Receipt Date: 20100916
  Transmission Date: 20120825
  Serious: Yes (Other)
  Sender: FDA-Public Use
  Company Number: PHEH2010US03625

PATIENT
  Age: 58 Year
  Sex: Female

DRUGS (1)
  1. RECLAST [Suspect]
     Indication: OSTEOPOROSIS
     Dosage: IV INFUSION
     Dates: start: 20100802

REACTIONS (4)
  - INFLUENZA LIKE ILLNESS [None]
  - ALOPECIA [None]
  - PAIN [None]
  - FATIGUE [None]
